FAERS Safety Report 10171742 (Version 1)
Quarter: 2014Q2

REPORT INFORMATION
  Report Type: Spontaneous
  Country: CN (occurrence: CN)
  Receive Date: 20140514
  Receipt Date: 20140514
  Transmission Date: 20141212
  Serious: Yes (Hospitalization)
  Sender: FDA-Public Use
  Company Number: CN-BAXTER-2014BAX023150

PATIENT
  Age: 58 Year
  Sex: Male
  Weight: 56 kg

DRUGS (3)
  1. ENDOXAN [Suspect]
     Indication: LUPUS NEPHRITIS
     Route: 041
     Dates: start: 20131122, end: 20131123
  2. 0.9% SODIUM CHLORIDE INJECTION [Suspect]
     Indication: MEDICATION DILUTION
     Route: 041
     Dates: start: 20131122
  3. SOU-MEDROL [Suspect]
     Indication: LUPUS NEPHRITIS
     Route: 065
     Dates: start: 20131122

REACTIONS (1)
  - Haematuria [Recovering/Resolving]
